FAERS Safety Report 9414755 (Version 2)
Quarter: 2013Q3

REPORT INFORMATION
  Report Type: Spontaneous
  Country: RU (occurrence: RU)
  Receive Date: 20130723
  Receipt Date: 20130802
  Transmission Date: 20140515
  Serious: Yes (Hospitalization, Other)
  Sender: FDA-Public Use
  Company Number: RU-PFIZER INC-2013213447

PATIENT
  Age: 75 Year
  Sex: Male

DRUGS (13)
  1. SPIRONOLACTONE [Suspect]
     Indication: CARDIAC FAILURE CHRONIC
     Dosage: 50 MG, DAILY
     Dates: start: 201210
  2. SPIRONOLACTONE [Interacting]
     Indication: ATRIAL FIBRILLATION
  3. PRADAXA [Interacting]
     Indication: ANTICOAGULANT THERAPY
     Dosage: 220 MG, DAILY
     Dates: start: 201210
  4. PRADAXA [Interacting]
     Indication: CARDIAC FAILURE CHRONIC
  5. PRADAXA [Interacting]
     Indication: ATRIAL FIBRILLATION
  6. ENALAPRIL [Interacting]
     Indication: CARDIAC FAILURE CHRONIC
     Dosage: 20 MG, DAILY
     Dates: start: 201210
  7. ENALAPRIL [Interacting]
     Indication: ATRIAL FIBRILLATION
  8. DIABETONE [Concomitant]
     Indication: DIABETES MELLITUS
     Dosage: 30 MG, DAILY
     Dates: start: 201210
  9. METOPROLOL SUCCINATE [Concomitant]
     Dosage: 150 MG, DAILY
     Dates: start: 201210
  10. DIGOXIN [Concomitant]
     Dosage: 0.375 MG, DAILY
     Dates: start: 201210
  11. AMLODIPINE [Concomitant]
     Dosage: 2.5 MG, DAILY
     Dates: start: 201210
  12. FUROSEMIDE [Concomitant]
     Dosage: 80 MG, DAILY
     Dates: start: 201210
  13. ATORVASTATIN [Concomitant]
     Dosage: 20 MG, DAILY
     Dates: start: 201210

REACTIONS (3)
  - Drug interaction [Unknown]
  - Renal failure [Recovered/Resolved]
  - Haemorrhage [Unknown]
